FAERS Safety Report 6650280-7 (Version None)
Quarter: 2010Q1

REPORT INFORMATION
  Report Type: 
  Country: None (occurrence: None)
  Receive Date: 20100325
  Receipt Date: 20100317
  Transmission Date: 20100710
  Serious: Yes (Hospitalization)
  Sender: FDA-Public Use
  Company Number: SE-ASTRAZENECA-2010SE10344

PATIENT
  Sex: Female

DRUGS (2)
  1. PULMICORT [Suspect]
     Indication: ASTHMA
     Route: 055
     Dates: start: 20100101
  2. UNKNOWN MEDICINE [Concomitant]
     Indication: HYPERTENSION

REACTIONS (2)
  - DRUG INEFFECTIVE [None]
  - DYSPNOEA [None]
